FAERS Safety Report 4849754-0 (Version None)
Quarter: 2005Q4

REPORT INFORMATION
  Report Type: 
  Country: None (occurrence: None)
  Receive Date: 20051107
  Receipt Date: 20050603
  Transmission Date: 20060501
  Serious: Yes (Life-Threatening, Hospitalization)
  Sender: FDA-Public Use
  Company Number: MED-05027

PATIENT
  Sex: 0

DRUGS (2)
  1. SULFAMETHOXAZOLE + TRIMETHOPRIM [Suspect]
     Indication: ACNE
     Dosage: 800/160MG TABS. B 10
     Dates: start: 20050318, end: 20050320
  2. BENZAMYCIN GEL (TOPICAL) [Concomitant]

REACTIONS (1)
  - INFLUENZA LIKE ILLNESS [None]
